FAERS Safety Report 5053138-2 (Version None)
Quarter: 2006Q3

REPORT INFORMATION
  Report Type: 
  Country: None (occurrence: None)
  Receive Date: 20060710
  Receipt Date: 20060630
  Transmission Date: 20061208
  Serious: Yes (Hospitalization)
  Sender: FDA-Public Use
  Company Number: HQWYE513530JUN06

PATIENT
  Age: 8 Year
  Sex: Female

DRUGS (4)
  1. OROKEN [Suspect]
     Indication: ABDOMINAL PAIN
     Dosage: ORAL
     Route: 048
     Dates: start: 20060502, end: 20060515
  2. OROKEN [Suspect]
     Indication: PYREXIA
     Dosage: ORAL
     Route: 048
     Dates: start: 20060502, end: 20060515
  3. BACTRIM [Suspect]
     Indication: ABDOMINAL PAIN
     Dosage: ORAL
     Route: 048
     Dates: start: 20060502, end: 20060515
  4. BACTRIM [Suspect]
     Indication: PYREXIA
     Dosage: ORAL
     Route: 048
     Dates: start: 20060502, end: 20060515

REACTIONS (7)
  - CHEILITIS [None]
  - CONJUNCTIVAL DISORDER [None]
  - DERMATITIS BULLOUS [None]
  - PHOTOSENSITIVITY REACTION [None]
  - PRURITUS [None]
  - PURPURA [None]
  - PYREXIA [None]
